FAERS Safety Report 8433553-7 (Version None)
Quarter: 2012Q2

REPORT INFORMATION
  Report Type: 
  Country: None (occurrence: None)
  Receive Date: 20120323
  Receipt Date: 20111215
  Transmission Date: 20120825
  Serious: Yes (Hospitalization, Other)
  Sender: FDA-Public Use
  Company Number: 163-21880-11071464

PATIENT
  Age: 43 Year
  Sex: Male

DRUGS (15)
  1. PROTONIX [Concomitant]
  2. NEURONTIN [Concomitant]
  3. LAMICTAL [Concomitant]
  4. SEROQUEL [Concomitant]
  5. MARINOL [Concomitant]
  6. VALTREX [Concomitant]
  7. CYMBALTA [Concomitant]
  8. LOMOTIL [Concomitant]
  9. OXYCODONE HCL [Concomitant]
  10. OXYCONTIN [Concomitant]
  11. DECADRON [Concomitant]
  12. ZOMETA [Concomitant]
  13. LENALIDOMIDE [Suspect]
     Indication: MULTIPLE MYELOMA
     Dosage: 15 MG, DAILY, PO; 10 MG, 1 IN 1 D, PO; 15 MG, 1 IN 1 D, PO
     Route: 048
     Dates: start: 20100501
  14. LENALIDOMIDE [Suspect]
     Indication: MULTIPLE MYELOMA
     Dosage: 15 MG, DAILY, PO; 10 MG, 1 IN 1 D, PO; 15 MG, 1 IN 1 D, PO
     Route: 048
     Dates: start: 20110201
  15. LENALIDOMIDE [Suspect]
     Indication: MULTIPLE MYELOMA
     Dosage: 15 MG, DAILY, PO; 10 MG, 1 IN 1 D, PO; 15 MG, 1 IN 1 D, PO
     Route: 048
     Dates: start: 20100202

REACTIONS (2)
  - OSTEOARTHRITIS [None]
  - THROMBOPHLEBITIS SUPERFICIAL [None]
